FAERS Safety Report 9338095 (Version 1)
Quarter: 2013Q2

REPORT INFORMATION
  Report Type: Spontaneous
  Country: FR (occurrence: FR)
  Receive Date: 20130610
  Receipt Date: 20130610
  Transmission Date: 20140414
  Serious: Yes (Disabling, Other)
  Sender: FDA-Public Use
  Company Number: FR-ROCHE-1232226

PATIENT
  Sex: Female

DRUGS (5)
  1. XOLAIR [Suspect]
     Indication: ASTHMA
     Route: 058
     Dates: start: 20130124
  2. SERETIDE [Concomitant]
  3. SINGULAIR [Concomitant]
     Route: 065
     Dates: start: 20121011
  4. CORTANCYL [Concomitant]
     Route: 065
     Dates: start: 20121129
  5. VENTOLINE [Concomitant]
     Route: 065
     Dates: start: 20121011

REACTIONS (4)
  - Influenza [Recovered/Resolved]
  - Oedema peripheral [Recovered/Resolved]
  - Vomiting [Recovered/Resolved]
  - Injection site oedema [Recovered/Resolved]
